FAERS Safety Report 8044479-5 (Version None)
Quarter: 2012Q1

REPORT INFORMATION
  Report Type: 
  Country: None (occurrence: None)
  Receive Date: 20120113
  Receipt Date: 20120111
  Transmission Date: 20120608
  Serious: Yes (Hospitalization, Other)
  Sender: FDA-Public Use
  Company Number: US-JNJFOC-20120104028

PATIENT
  Age: 55 Year
  Sex: Male

DRUGS (7)
  1. LEUSTATIN [Suspect]
     Indication: HAIRY CELL LEUKAEMIA
     Dosage: FOR 7 DAYS
     Route: 065
     Dates: start: 20111228, end: 20120104
  2. LEVOFLOXACIN [Suspect]
     Indication: PRODUCT USED FOR UNKNOWN INDICATION
     Route: 065
     Dates: start: 20120105
  3. ALLOPURINOL [Concomitant]
     Indication: GOUT
     Route: 065
  4. BACTRIM [Concomitant]
     Indication: PNEUMOCYSTIS JIROVECI PNEUMONIA
     Route: 065
  5. ACYCLOVIR [Concomitant]
     Indication: PNEUMOCYSTIS JIROVECI PNEUMONIA
     Route: 065
  6. ROCEPHIN [Suspect]
     Indication: PRODUCT USED FOR UNKNOWN INDICATION
     Route: 065
  7. LOVASTATIN [Concomitant]
     Route: 065

REACTIONS (11)
  - RASH [None]
  - MYALGIA [None]
  - CHILLS [None]
  - PYREXIA [None]
  - FEELING ABNORMAL [None]
  - DRUG INEFFECTIVE [None]
  - TREMOR [None]
  - BLOOD CREATININE INCREASED [None]
  - LIVER FUNCTION TEST ABNORMAL [None]
  - FLUSHING [None]
  - PANCYTOPENIA [None]
